FAERS Safety Report 5136035-3 (Version None)
Quarter: 2006Q4

REPORT INFORMATION
  Report Type: 
  Country: None (occurrence: None)
  Receive Date: 20061023
  Receipt Date: 20061010
  Transmission Date: 20070319
  Serious: No
  Sender: FDA-Public Use
  Company Number: US-2006-031668

PATIENT
  Sex: Female

DRUGS (1)
  1. MIRENA [Suspect]
     Dosage: 20 UG/DAY, CONT, INTRA-UTERINE
     Route: 015
     Dates: start: 20060928, end: 20061006

REACTIONS (3)
  - ABDOMINAL PAIN [None]
  - DEVICE BREAKAGE [None]
  - PHARMACEUTICAL PRODUCT COMPLAINT [None]
